FAERS Safety Report 5851316-3 (Version None)
Quarter: 2008Q3

REPORT INFORMATION
  Report Type: 
  Country: None (occurrence: None)
  Receive Date: 20080820
  Receipt Date: 20080811
  Transmission Date: 20090109
  Serious: Yes (Hospitalization)
  Sender: FDA-Public Use
  Company Number: JP-AVENTIS-200817063GDDC

PATIENT
  Age: 71 Year
  Sex: Female

DRUGS (19)
  1. RIFADIN [Suspect]
     Indication: LATENT TUBERCULOSIS
     Route: 048
     Dates: start: 20080515, end: 20080526
  2. RIFADIN [Suspect]
     Route: 048
     Dates: start: 20080527, end: 20080610
  3. NEOISCOTIN [Suspect]
     Indication: LATENT TUBERCULOSIS
     Route: 048
     Dates: start: 20080515, end: 20080529
  4. NEOISCOTIN [Suspect]
     Route: 048
     Dates: start: 20080602, end: 20080610
  5. STREPTOMYCIN [Concomitant]
     Indication: LATENT TUBERCULOSIS
     Dates: start: 20080515, end: 20080610
  6. LASIX [Concomitant]
     Indication: HEPATIC CIRRHOSIS
     Route: 048
     Dates: start: 20070905
  7. DIOVANE [Concomitant]
     Indication: HYPERTENSION
     Route: 048
     Dates: start: 20070905
  8. URSO                               /00465701/ [Concomitant]
     Route: 048
     Dates: start: 20070905
  9. CALTAN [Concomitant]
     Route: 048
     Dates: start: 20080208
  10. PYDOXAL [Concomitant]
     Indication: LATENT TUBERCULOSIS
     Route: 048
     Dates: start: 20080515, end: 20080610
  11. LIVACT [Concomitant]
     Indication: HEPATIC CIRRHOSIS
     Route: 048
     Dates: start: 20070905
  12. ADALAT [Concomitant]
     Indication: HYPERTENSION
     Route: 048
     Dates: start: 20080526
  13. ENALAPRIL MALEATE [Concomitant]
     Indication: HYPERTENSION
     Route: 048
     Dates: start: 20080603
  14. DOXAZOSIN MESYLATE [Concomitant]
     Indication: HYPERTENSION
     Route: 048
     Dates: start: 20080603
  15. ARTIST [Concomitant]
     Indication: HYPERTENSION
     Route: 048
     Dates: start: 20080529
  16. INNOLET [Concomitant]
     Indication: DIABETES MELLITUS
     Dates: start: 20080221
  17. INNOLET [Concomitant]
     Dates: start: 20080221
  18. CALBLOCK [Concomitant]
     Indication: HYPERTENSION
     Route: 048
     Dates: start: 20080413, end: 20080526
  19. MILLIS [Concomitant]
     Indication: HYPERTENSION
     Route: 048
     Dates: start: 20080513, end: 20080605

REACTIONS (2)
  - HYPERCALCAEMIA [None]
  - HYPERTENSION [None]
